FAERS Safety Report 15582443 (Version 6)
Quarter: 2019Q1

REPORT INFORMATION
  Report Type: Report from Study
  Country: US (occurrence: US)
  Receive Date: 20181105
  Receipt Date: 20190130
  Transmission Date: 20190417
  Serious: Yes (Hospitalization, Other)
  Sender: FDA-Public Use
  Company Number: US-BRISTOL-MYERS SQUIBB COMPANY-BMS-2018-102285

PATIENT
  Age: 69 Year
  Sex: Female
  Weight: 49.3 kg

DRUGS (1)
  1. NIVOLUMAB [Suspect]
     Active Substance: NIVOLUMAB
     Indication: T-CELL LYMPHOMA
     Dosage: 480 MG, Q4WK
     Route: 042
     Dates: start: 20180720, end: 20181221

REACTIONS (11)
  - Abdominal pain [Unknown]
  - Herpes zoster [Unknown]
  - Pyrexia [Unknown]
  - Hypovolaemia [Unknown]
  - Hypotension [Unknown]
  - Enterovirus test positive [Unknown]
  - Dehydration [Unknown]
  - Rhinovirus infection [Unknown]
  - Diarrhoea [Not Recovered/Not Resolved]
  - Upper respiratory tract infection [Unknown]
  - Acute kidney injury [Unknown]

NARRATIVE: CASE EVENT DATE: 20181025
